FAERS Safety Report 7795802-8 (Version None)
Quarter: 2011Q4

REPORT INFORMATION
  Report Type: 
  Country: None (occurrence: None)
  Receive Date: 20111004
  Receipt Date: 20110923
  Transmission Date: 20120403
  Serious: Yes (Hospitalization)
  Sender: FDA-Public Use
  Company Number: US-BAYER-201037000NA

PATIENT
  Age: 28 Year
  Sex: Female
  Weight: 93.878 kg

DRUGS (1)
  1. YASMIN [Suspect]
     Indication: MENORRHAGIA
     Dosage: UNK UNK, UNK
     Route: 048
     Dates: start: 20060201, end: 20060401

REACTIONS (4)
  - INJURY [None]
  - PULMONARY EMBOLISM [None]
  - PAIN [None]
  - EMOTIONAL DISTRESS [None]
